FAERS Safety Report 23198120 (Version 1)
Quarter: 2023Q4

REPORT INFORMATION
  Report Type: Report from Study
  Country: US (occurrence: None)
  Receive Date: 20231117
  Receipt Date: 20231117
  Transmission Date: 20240110
  Serious: Yes (Other)
  Sender: FDA-Public Use
  Company Number: 2023A257708

PATIENT
  Sex: Female

DRUGS (1)
  1. LYNPARZA [Suspect]
     Active Substance: OLAPARIB
     Indication: Ovarian cancer
     Route: 048
     Dates: start: 20230712

REACTIONS (9)
  - Blood magnesium decreased [Unknown]
  - Carbohydrate antigen 125 increased [Unknown]
  - Pain [Unknown]
  - Back pain [Unknown]
  - Neuropathy peripheral [Unknown]
  - Middle insomnia [Unknown]
  - Contusion [Unknown]
  - Alopecia [Unknown]
  - Fatigue [Unknown]
